FAERS Safety Report 9161902 (Version 1)
Quarter: 2013Q1

REPORT INFORMATION
  Report Type: Spontaneous
  Country: US (occurrence: None)
  Receive Date: 20130221
  Receipt Date: 20130221
  Transmission Date: 20140127
  Serious: Yes (Hospitalization, Other)
  Sender: FDA-Public Use
  Company Number: 2013P1002178

PATIENT
  Age: 86 Year
  Sex: Female

DRUGS (4)
  1. CORTISONE [Suspect]
     Indication: CHRONIC OBSTRUCTIVE PULMONARY DISEASE
     Route: 030
  2. FUROSEMIDE [Suspect]
     Indication: RENAL DISORDER
  3. CIPROFLOXACIN [Suspect]
     Indication: CHRONIC OBSTRUCTIVE PULMONARY DISEASE
  4. ACETYLSALCYSTEINE [Concomitant]

REACTIONS (15)
  - Palpitations [None]
  - Chronic obstructive pulmonary disease [None]
  - Cyanosis [None]
  - Hyperhidrosis [None]
  - Pulmonary oedema [None]
  - Extrasystoles [None]
  - Cardiac murmur [None]
  - Hypocalcaemia [None]
  - Electrocardiogram QT prolonged [None]
  - Ventricular hypertrophy [None]
  - Ventricular hypokinesia [None]
  - Dilatation atrial [None]
  - Mitral valve incompetence [None]
  - Tricuspid valve incompetence [None]
  - Cardiac failure [None]
